FAERS Safety Report 14391557 (Version 1)
Quarter: 2018Q1

REPORT INFORMATION
  Report Type: Report from Study
  Country: EC (occurrence: EC)
  Receive Date: 20180116
  Receipt Date: 20180116
  Transmission Date: 20180509
  Serious: Yes (Death, Hospitalization)
  Sender: FDA-Public Use
  Company Number: PHHY2018EC004981

PATIENT
  Age: 73 Year
  Sex: Male

DRUGS (3)
  1. TASIGNA [Suspect]
     Active Substance: NILOTINIB
     Dosage: 200 MG, BID
     Route: 048
     Dates: start: 20160819
  2. TASIGNA [Suspect]
     Active Substance: NILOTINIB
     Indication: CHRONIC MYELOID LEUKAEMIA
     Dosage: 600 MG, (400 MG IN THE MORNING AND 200 MG IN THE NIGHT)
     Route: 048
     Dates: start: 20141127, end: 20150526
  3. TASIGNA [Suspect]
     Active Substance: NILOTINIB
     Dosage: 400 MG ONE DAY AND 600 MG THE NEXT DAY
     Route: 048
     Dates: end: 20160818

REACTIONS (2)
  - Sepsis [Fatal]
  - Inappropriate schedule of drug administration [Recovered/Resolved]

NARRATIVE: CASE EVENT DATE: 20171227
